FAERS Safety Report 5125200-7 (Version None)
Quarter: 2006Q4

REPORT INFORMATION
  Report Type: 
  Country: None (occurrence: None)
  Receive Date: 20061010
  Receipt Date: 20061010
  Transmission Date: 20070319
  Serious: No
  Sender: FDA-Public Use
  Company Number: None

PATIENT
  Sex: Female
  Weight: 58.9676 kg

DRUGS (1)
  1. ASTELIN [Suspect]
     Dosage: 2 SPRAYS EA - NOSTRIL 2X DAILY
     Route: 045
     Dates: start: 20060908

REACTIONS (10)
  - CRYING [None]
  - DRY MOUTH [None]
  - DYSPNOEA [None]
  - EYE INFECTION [None]
  - INCORRECT DOSE ADMINISTERED [None]
  - INCORRECT ROUTE OF DRUG ADMINISTRATION [None]
  - MOANING [None]
  - NASAL DISCOMFORT [None]
  - RESPIRATORY ARREST [None]
  - THROAT IRRITATION [None]
